FAERS Safety Report 18739979 (Version 1)
Quarter: 2021Q1

REPORT INFORMATION
  Report Type: Spontaneous
  Country: US (occurrence: US)
  Receive Date: 20210113
  Receipt Date: 20210113
  Transmission Date: 20210419
  Serious: Yes (Hospitalization)
  Sender: FDA-Public Use
  Company Number: None

PATIENT
  Age: 69 Year
  Sex: Male
  Weight: 124 kg

DRUGS (1)
  1. SEMAGLUTIDE (SEMAGLUTIDE 1MG/0.75ML INJ, SOLN, PEN, 1.5ML) [Suspect]
     Active Substance: SEMAGLUTIDE
     Indication: DIABETES MELLITUS
     Route: 058
     Dates: start: 20201109, end: 20201230

REACTIONS (2)
  - Chest pain [None]
  - Pancreatitis [None]

NARRATIVE: CASE EVENT DATE: 20201230
